FAERS Safety Report 7585365-4 (Version None)
Quarter: 2011Q3

REPORT INFORMATION
  Report Type: 
  Country: None (occurrence: None)
  Receive Date: 20110701
  Receipt Date: 20090930
  Transmission Date: 20111222
  Serious: Yes (Other)
  Sender: FDA-Public Use
  Company Number: US-BAYER-200934360NA

PATIENT
  Age: 76 Year
  Sex: Male
  Weight: 103.86 kg

DRUGS (23)
  1. PLAVIX [Concomitant]
     Dosage: 75 MG, QD
     Route: 048
  2. LIPITOR [Concomitant]
     Dosage: 10 MG, QD
  3. ROCURONIUM BROMIDE [Concomitant]
     Dosage: UNK
     Dates: start: 20040803
  4. HEPARIN [Concomitant]
     Dosage: 35000 U, UNK
     Route: 042
     Dates: start: 20040803
  5. LISINOPRIL AND HYDROCHLOROTHIAZIDE [Concomitant]
     Dosage: 20/25 MG
     Route: 048
     Dates: start: 20040726
  6. CEFUROXIME [Concomitant]
     Dosage: 1.5 G, UNK
     Route: 042
     Dates: start: 20040803
  7. SPIRONOLACTONE [Concomitant]
     Indication: PRODUCT USED FOR UNKNOWN INDICATION
     Dosage: 25 MG, UNK
     Route: 048
     Dates: start: 20040728
  8. COUMADIN [Concomitant]
     Dosage: 5 MG, TUE, THURS,SAT
     Route: 048
  9. SUFENTA PRESERVATIVE FREE [Concomitant]
     Dosage: UNK
     Dates: start: 20040803
  10. COREG [Concomitant]
     Indication: PRODUCT USED FOR UNKNOWN INDICATION
     Dosage: 6.25 MG, BID
     Route: 048
     Dates: start: 20040731
  11. DILTIAZEM [Concomitant]
     Dosage: 180 MG, QD
     Route: 048
  12. VIOXX [Concomitant]
  13. VECURONIUM BROMIDE [Concomitant]
     Dosage: 10 MG, UNK
     Dates: start: 20040803
  14. HEPARIN [Concomitant]
     Indication: PRODUCT USED FOR UNKNOWN INDICATION
     Dosage: UNK
     Route: 042
     Dates: start: 20040730
  15. ACETYLSALICYLIC ACID SRT [Concomitant]
     Dosage: 81 MG, QD
     Route: 048
  16. TRASYLOL [Suspect]
     Indication: CORONARY ARTERY BYPASS
     Dosage: 1ML TEST DOSE, 100CC HUNG
     Dates: start: 20040803, end: 20040803
  17. TRASYLOL [Suspect]
     Indication: MITRAL VALVE REPLACEMENT
  18. AVANDIA [Concomitant]
     Dosage: 4 MG, QD
     Route: 048
  19. LASIX [Concomitant]
     Indication: PRODUCT USED FOR UNKNOWN INDICATION
     Dosage: 40 MG MULTIPLE DOSES ORAL/IV
     Dates: start: 20040728
  20. ALLOPURINOL [Concomitant]
     Dosage: 300 MG, QD
  21. ISOFLURANE [Concomitant]
     Dosage: UNK
     Dates: start: 20040803
  22. VERSED [Concomitant]
     Dosage: UNK
     Dates: start: 20040803
  23. COUMADIN [Concomitant]
     Dosage: 2 MG, MON, WED,FRI, SUN
     Route: 048

REACTIONS (13)
  - RENAL INJURY [None]
  - FEAR OF DEATH [None]
  - PAIN [None]
  - MULTI-ORGAN FAILURE [None]
  - INJURY [None]
  - UNEVALUABLE EVENT [None]
  - ANXIETY [None]
  - EMOTIONAL DISTRESS [None]
  - DEPRESSION [None]
  - FEAR [None]
  - ANHEDONIA [None]
  - NERVOUSNESS [None]
  - RENAL FAILURE [None]
